FAERS Safety Report 5918502-5 (Version None)
Quarter: 2008Q4

REPORT INFORMATION
  Report Type: 
  Country: None (occurrence: None)
  Receive Date: 20081010
  Receipt Date: 20081003
  Transmission Date: 20090506
  Serious: Yes (Hospitalization)
  Sender: FDA-Public Use
  Company Number: 2008JP004100

PATIENT
  Age: 70 Year
  Sex: Male
  Weight: 51 kg

DRUGS (10)
  1. FUNGUARD (MICAFUNGIN) INJECTION [Suspect]
     Indication: BRONCHOPULMONARY ASPERGILLOSIS
     Dosage: 150 MG, UD/QD, IV DRIP
     Route: 041
     Dates: start: 20080716, end: 20080812
  2. BESACOLIN(BETHANELCHOL CHLORIDE) POWDER [Suspect]
     Indication: BENIGN PROSTATIC HYPERPLASIA
     Dosage: 15 MG, TID, ORAL
     Route: 048
     Dates: start: 20080724, end: 20080827
  3. PREDONNINE (PREDINISOLONE) TABLET [Concomitant]
  4. PARIET (RABEPRAZOLE SODIUM) [Concomitant]
  5. BIO TREE (CLOSTRIDIUM BUTYRICUM) TABLET [Concomitant]
  6. VANCOMIN (MECOBALAMIN) TABLET [Concomitant]
  7. JUELA N (TOCOPHERYL NICOTINATE) CAPSULE [Concomitant]
  8. ELENTAL (VITAMINS NOS, MINERALS NOS) POWDER [Concomitant]
  9. OMEPRAL INJECTION [Concomitant]
  10. CEFTAZIDIME [Concomitant]

REACTIONS (4)
  - APLASIA PURE RED CELL [None]
  - HAEMORRHOIDS [None]
  - MELAENA [None]
  - RECTAL ULCER [None]
